FAERS Safety Report 20158540 (Version 2)
Quarter: 2022Q1

REPORT INFORMATION
  Report Type: Spontaneous
  Country: US (occurrence: US)
  Receive Date: 20211207
  Receipt Date: 20220105
  Transmission Date: 20220423
  Serious: Yes (Death, Other)
  Sender: FDA-Public Use
  Company Number: US-BAXTER-2021BAX038589

PATIENT

DRUGS (1)
  1. FLUCONAZOLE [Suspect]
     Active Substance: FLUCONAZOLE
     Indication: Product used for unknown indication
     Dosage: 14 DAY COURSE
     Route: 042

REACTIONS (6)
  - Death [Fatal]
  - Septic shock [Unknown]
  - Pneumothorax [Unknown]
  - Oesophageal perforation [Unknown]
  - Candida infection [Unknown]
  - Drug ineffective [Unknown]
